FAERS Safety Report 8884877 (Version 1)
Quarter: 2012Q4

REPORT INFORMATION
  Report Type: 
  Country: US (occurrence: US)
  Receive Date: 20121102
  Receipt Date: 20121102
  Transmission Date: 20130627
  Serious: No
  Sender: FDA-Public Use
  Company Number: US-PFIZER INC-2012274449

PATIENT
  Age: 58 Year
  Sex: Female
  Weight: 68.93 kg

DRUGS (2)
  1. LYRICA [Suspect]
     Indication: OSTEOARTHRITIS
     Dosage: 150 mg, 2x/day
     Dates: end: 201210
  2. LYRICA [Suspect]
     Indication: RHEUMATOID ARTHRITIS

REACTIONS (2)
  - Pain in extremity [Unknown]
  - Oedema peripheral [Unknown]
